FAERS Safety Report 21778752 (Version 1)
Quarter: 2022Q4

REPORT INFORMATION
  Report Type: Spontaneous
  Country: HR (occurrence: HR)
  Receive Date: 20221226
  Receipt Date: 20221226
  Transmission Date: 20230113
  Serious: Yes (Other)
  Sender: FDA-Public Use
  Company Number: None

PATIENT
  Age: 16 Year
  Sex: Female
  Weight: 50 kg

DRUGS (1)
  1. OLANZAPINE [Suspect]
     Active Substance: OLANZAPINE
     Indication: Product used for unknown indication
     Dosage: 3-4 KUTIJE (28 TBL U 1 KUTIJI) 5 MG ILI 10 MG?
     Route: 048
     Dates: start: 20221107, end: 20221107

REACTIONS (5)
  - Altered state of consciousness [Unknown]
  - Somnolence [Unknown]
  - Intentional overdose [Unknown]
  - Tachycardia [Unknown]
  - Suicide attempt [Unknown]

NARRATIVE: CASE EVENT DATE: 20221107
